FAERS Safety Report 11589132 (Version 1)
Quarter: 2015Q4

REPORT INFORMATION
  Report Type: Spontaneous
  Country: US (occurrence: None)
  Receive Date: 20151001
  Receipt Date: 20151001
  Transmission Date: 20160304
  Serious: No
  Sender: FDA-Public Use
  Company Number: None

PATIENT
  Sex: Female

DRUGS (1)
  1. INTRON A [Suspect]
     Active Substance: INTERFERON ALFA-2B
     Indication: MALIGNANT MELANOMA
     Dosage: 21.5MU 3X WEEKLY
     Route: 058

REACTIONS (6)
  - Nausea [None]
  - Appetite disorder [None]
  - Pyrexia [None]
  - Alopecia [None]
  - Headache [None]
  - Chills [None]

NARRATIVE: CASE EVENT DATE: 2015
